FAERS Safety Report 10225105 (Version 7)
Quarter: 2014Q4

REPORT INFORMATION
  Report Type: Report from Study
  Country: IT (occurrence: IT)
  Receive Date: 20140609
  Receipt Date: 20141029
  Transmission Date: 20150528
  Serious: Yes (Life-Threatening)
  Sender: FDA-Public Use
  Company Number: IT-BAYER-2014-045975

PATIENT
  Age: 60 Year
  Sex: Male
  Weight: 66 kg

DRUGS (17)
  1. PANTORC [Concomitant]
     Active Substance: PANTOPRAZOLE SODIUM
     Indication: GASTROOESOPHAGEAL REFLUX PROPHYLAXIS
     Dosage: 40 MG, QD
     Route: 048
     Dates: start: 20121113, end: 201405
  2. RADIUM-223 DICHLORIDE [Suspect]
     Active Substance: RADIUM RA-223 DICHLORIDE
     Indication: PROSTATE CANCER METASTATIC
     Dosage: 3290 KBQ, ONCE
     Route: 042
     Dates: start: 20140110, end: 20140110
  3. OXYCODONE [Concomitant]
     Active Substance: OXYCODONE
     Indication: PAIN
     Dosage: 80/10 X 2 (BID), 70/5 X 2 (BID)
     Route: 048
     Dates: start: 20140110
  4. COLECALCIFEROL [Concomitant]
     Active Substance: CHOLECALCIFEROL
     Indication: METASTASES TO BONE
     Dosage: 100000 U, Q1MON
     Route: 048
     Dates: start: 20140222, end: 201405
  5. RED BLOOD CELLS [Concomitant]
     Active Substance: HUMAN RED BLOOD CELL
     Indication: ANAEMIA
     Dosage: 2 U, ONCE
     Route: 042
     Dates: start: 20131227, end: 20131227
  6. RED BLOOD CELLS [Concomitant]
     Active Substance: HUMAN RED BLOOD CELL
     Indication: ANAEMIA
     Dosage: 2 U, ONCE
     Route: 042
     Dates: start: 20140123, end: 20140123
  7. PANTORC [Concomitant]
     Active Substance: PANTOPRAZOLE SODIUM
     Indication: DYSPEPSIA
  8. COLECALCIFEROL [Concomitant]
     Active Substance: CHOLECALCIFEROL
     Indication: METASTASES TO BONE
     Dosage: 100000 U, Q1MON
     Route: 048
     Dates: start: 20130222
  9. TARGIN [Concomitant]
     Active Substance: NALOXONE HYDROCHLORIDE\OXYCODONE HYDROCHLORIDE
     Indication: PAIN
     Dosage: 80/10 X 2 (BID), 70/5 X 2 (BID)
     Route: 048
     Dates: start: 20140110
  10. RED BLOOD CELLS [Concomitant]
     Active Substance: HUMAN RED BLOOD CELL
     Indication: ANAEMIA
     Dosage: 2 U, ONCE
     Route: 042
     Dates: start: 20131218, end: 20131218
  11. RED BLOOD CELLS [Concomitant]
     Active Substance: HUMAN RED BLOOD CELL
     Indication: ANAEMIA
     Dosage: 2 U, ONCE
     Route: 042
     Dates: start: 20140204, end: 20140204
  12. RED BLOOD CELLS [Concomitant]
     Active Substance: HUMAN RED BLOOD CELL
     Indication: ANAEMIA
     Dosage: 2 U, ONCE
     Route: 042
     Dates: start: 20140219, end: 20140219
  13. ENANTONE LP [Concomitant]
     Active Substance: LEUPROLIDE ACETATE
     Indication: PROSTATE CANCER
     Dosage: 3.75 EVERY 28 DAYS
     Route: 030
     Dates: start: 200909, end: 201405
  14. RED BLOOD CELLS [Concomitant]
     Active Substance: HUMAN RED BLOOD CELL
     Indication: ANAEMIA
     Dosage: 2 U, ONCE
     Route: 042
     Dates: start: 20140211, end: 20140211
  15. RADIUM-223 DICHLORIDE [Suspect]
     Active Substance: RADIUM RA-223 DICHLORIDE
     Indication: PROSTATE CANCER METASTATIC
     Dosage: 3680 KBQ, ONCE
     Route: 042
     Dates: start: 20131025, end: 20131025
  16. RADIUM-223 DICHLORIDE [Suspect]
     Active Substance: RADIUM RA-223 DICHLORIDE
     Indication: METASTASES TO BONE
     Dosage: 3480 KBQ, ONCE
     Route: 042
     Dates: start: 20131122, end: 20131122
  17. OMNIC [Concomitant]
     Active Substance: TAMSULOSIN HYDROCHLORIDE
     Indication: BENIGN PROSTATIC HYPERPLASIA
     Dosage: 0.4 MG, QD
     Route: 048
     Dates: start: 20091113, end: 201405

REACTIONS (1)
  - Platelet count decreased [Not Recovered/Not Resolved]

NARRATIVE: CASE EVENT DATE: 20131220
